FAERS Safety Report 7425905-9 (Version None)
Quarter: 2011Q2

REPORT INFORMATION
  Report Type: 
  Country: None (occurrence: None)
  Receive Date: 20110420
  Receipt Date: 20110414
  Transmission Date: 20111010
  Serious: Yes (Death, Hospitalization)
  Sender: FDA-Public Use
  Company Number: JP-ROCHE-763752

PATIENT
  Sex: Male

DRUGS (21)
  1. DIOVAN [Concomitant]
     Dosage: BEFORE ADMINSTRATION OF THE DRUG
     Route: 048
     Dates: end: 20101215
  2. LIPITOR [Concomitant]
     Dosage: BEFORE ADMINSTRATION OF THE DRUG
     Route: 048
     Dates: end: 20101215
  3. FLUOROURACIL [Concomitant]
     Dosage: DOSAGE IS UNCERTAIN
     Route: 041
  4. FLUOROURACIL [Concomitant]
     Dosage: DOSAGE IS UNCERTAIN
     Route: 041
  5. FLUOROURACIL [Concomitant]
     Dosage: DOSAGE IS UNCERTAIN
     Route: 040
     Dates: start: 20100209
  6. FLUOROURACIL [Concomitant]
     Dosage: DOSAGE IS UNCERTAIN
     Route: 040
  7. LEVOFOLINATE [Concomitant]
     Dosage: DOSAGE IS UNCERTAIN
     Route: 041
  8. LEVOFOLINATE [Concomitant]
     Dosage: DOSAGE IS UNCERTAIN
     Route: 041
  9. LEVOFOLINATE [Concomitant]
     Dosage: DOSAGE IS UNCERTAIN
     Route: 041
     Dates: start: 20100701, end: 20101001
  10. FLUOROURACIL [Concomitant]
     Dosage: DOSAGE IS UNCERTAIN
     Route: 041
     Dates: start: 20100701, end: 20101001
  11. CETUXIMAB [Suspect]
     Indication: COLON CANCER RECURRENT
     Dosage: FORM:  INJECTION
     Route: 041
     Dates: start: 20101025, end: 20101025
  12. CETUXIMAB [Suspect]
     Route: 041
     Dates: start: 20101108, end: 20101108
  13. CETUXIMAB [Suspect]
     Route: 041
     Dates: start: 20101115, end: 20101115
  14. LEVOFOLINATE [Concomitant]
     Dosage: DOSAGE IS UNCERTAIN
     Route: 041
  15. IRINOTECAN HCL [Concomitant]
     Dosage: DOSAGE IS UNCERTAIN
     Route: 041
     Dates: start: 20100701, end: 20101001
  16. FLUOROURACIL [Concomitant]
     Dosage: DOSAGE IS UNCERTAIN
     Route: 040
     Dates: start: 20100701, end: 20101001
  17. FLUOROURACIL [Concomitant]
     Dosage: DOSAGE IS UNCERTAIN
     Route: 041
     Dates: start: 20100209
  18. AVASTIN [Suspect]
     Indication: LARGE INTESTINE CARCINOMA
     Route: 041
     Dates: start: 20090122, end: 20101004
  19. IRINOTECAN HCL [Concomitant]
     Dosage: DOSAGE IS UNCERTAIN
     Route: 041
  20. CETUXIMAB [Suspect]
     Route: 041
     Dates: start: 20101101, end: 20101101
  21. ELPLAT [Concomitant]
     Dosage: DOSAGE IS UNCERTAIN
     Route: 041

REACTIONS (2)
  - CEREBRAL HAEMORRHAGE [None]
  - JAUNDICE [None]
